FAERS Safety Report 7247421-X (Version None)
Quarter: 2011Q1

REPORT INFORMATION
  Report Type: 
  Country: None (occurrence: None)
  Receive Date: 20110127
  Receipt Date: 20110118
  Transmission Date: 20110831
  Serious: Yes (Hospitalization, Other)
  Sender: FDA-Public Use
  Company Number: PHHY2010DE35676

PATIENT
  Sex: Male
  Weight: 82 kg

DRUGS (5)
  1. HYDROXYUREA [Suspect]
     Indication: CHRONIC MYELOID LEUKAEMIA
     Dosage: 500 MG, DAILY
     Route: 048
     Dates: end: 20100531
  2. PARACETAMOL [Concomitant]
     Dosage: UNK
     Dates: start: 20090714
  3. MORPHINE [Concomitant]
     Dosage: UNK
     Dates: start: 20090714
  4. AMN107 [Suspect]
     Indication: CHRONIC MYELOID LEUKAEMIA
     Dosage: 800 MG, DAILY
     Route: 048
     Dates: start: 20080721, end: 20090210
  5. IBUPROFEN [Concomitant]
     Dosage: UNK
     Dates: start: 20081106

REACTIONS (21)
  - HYPOAESTHESIA [None]
  - NECK PAIN [None]
  - NAUSEA [None]
  - QUADRIPARESIS [None]
  - HEPATIC ENZYME ABNORMAL [None]
  - DIZZINESS [None]
  - FAECAL INCONTINENCE [None]
  - ARTHRALGIA [None]
  - DUODENAL ULCER [None]
  - NEOPLASM MALIGNANT [None]
  - FEELING COLD [None]
  - TOOTH DISORDER [None]
  - ANAEMIA [None]
  - NEURALGIA [None]
  - HEADACHE [None]
  - CAUDA EQUINA SYNDROME [None]
  - BLADDER DISORDER [None]
  - ASTHENIA [None]
  - INCONTINENCE [None]
  - BACK PAIN [None]
  - ABDOMINAL PAIN UPPER [None]
